FAERS Safety Report 12875878 (Version 1)
Quarter: 2016Q4

REPORT INFORMATION
  Report Type: Spontaneous
  Country: US (occurrence: US)
  Receive Date: 20161020
  Receipt Date: 20161020
  Transmission Date: 20170207
  Serious: Yes (Death)
  Sender: FDA-Public Use
  Company Number: None

PATIENT
  Age: 72 Year
  Sex: Female

DRUGS (1)
  1. GENGRAF [Suspect]
     Active Substance: CYCLOSPORINE
     Indication: RENAL TRANSPLANT
     Route: 048
     Dates: start: 20001016, end: 20160718

REACTIONS (3)
  - Clostridium difficile infection [None]
  - Sepsis [None]
  - Multiple organ dysfunction syndrome [None]

NARRATIVE: CASE EVENT DATE: 20160718
